FAERS Safety Report 18822731 (Version 1)
Quarter: 2021Q1

REPORT INFORMATION
  Report Type: Report from Study
  Country: US (occurrence: US)
  Receive Date: 20210202
  Receipt Date: 20210202
  Transmission Date: 20210419
  Serious: Yes (Other)
  Sender: FDA-Public Use
  Company Number: NVSC2021US019300

PATIENT
  Sex: Female

DRUGS (2)
  1. XIIDRA [Suspect]
     Active Substance: LIFITEGRAST
     Indication: CONJUNCTIVITIS
     Dosage: 5 %, BID
     Route: 065
     Dates: start: 20160909, end: 20200803
  2. XIIDRA [Suspect]
     Active Substance: LIFITEGRAST
     Indication: EYELID DISORDER

REACTIONS (2)
  - Conjunctivitis [Recovering/Resolving]
  - Product use in unapproved indication [Unknown]
